FAERS Safety Report 8281849-4 (Version None)
Quarter: 2012Q2

REPORT INFORMATION
  Report Type: 
  Country: None (occurrence: None)
  Receive Date: 20120413
  Receipt Date: 20120410
  Transmission Date: 20120825
  Serious: Yes (Hospitalization)
  Sender: FDA-Public Use
  Company Number: PHHY2012HU020539

PATIENT
  Age: 77 Year
  Sex: Female

DRUGS (8)
  1. VITAMIN D [Concomitant]
     Dosage: 1000 NE TABLET
     Dates: start: 20000401
  2. ZOLEDRONOC ACID [Suspect]
     Dosage: 5 MG, UNK
     Route: 042
  3. MESALAMINE [Concomitant]
     Dates: start: 20060101
  4. LEVOTHYROXINE SODIUM [Concomitant]
     Dosage: 37.5 MCG DAILY DOSE
     Dates: start: 20050101
  5. ZOLEDRONOC ACID [Suspect]
     Indication: OSTEOPOROSIS
     Dosage: 5 MG, UNK
     Route: 042
     Dates: start: 20080101
  6. ZOLEDRONOC ACID [Suspect]
     Dosage: 5 MG, UNK
     Route: 042
  7. CALCIUM CARBONATE [Concomitant]
     Dosage: 500 MG, UNK
     Route: 048
     Dates: start: 20081001
  8. ZOLEDRONOC ACID [Suspect]
     Dosage: 5 MG, UNK
     Route: 042
     Dates: start: 20111121

REACTIONS (3)
  - OSTEONECROSIS OF JAW [None]
  - SECONDARY SEQUESTRUM [None]
  - BONE FISTULA [None]
